FAERS Safety Report 8043080-7 (Version None)
Quarter: 2012Q1

REPORT INFORMATION
  Report Type: 
  Country: None (occurrence: None)
  Receive Date: 20120112
  Receipt Date: 20120106
  Transmission Date: 20120608
  Serious: Yes (Other)
  Sender: FDA-Public Use
  Company Number: CHPA2012US000634

PATIENT
  Age: 81 Year
  Sex: Female

DRUGS (2)
  1. COUMADIN [Concomitant]
     Dosage: UNK, UNK
  2. VOLTAREN [Suspect]
     Dosage: UNK, QD
     Route: 061
     Dates: start: 20111201, end: 20120106

REACTIONS (2)
  - UNDERDOSE [None]
  - PROTHROMBIN TIME PROLONGED [None]
